FAERS Safety Report 9527991 (Version 1)
Quarter: 2013Q1

REPORT INFORMATION
  Report Type: Spontaneous
  Country: US (occurrence: None)
  Receive Date: 20130313
  Receipt Date: 20130313
  Transmission Date: 20140127
  Serious: No
  Sender: FDA-Public Use
  Company Number: 1000028497

PATIENT
  Age: 53 Year
  Sex: Female

DRUGS (5)
  1. SAVELLA [Suspect]
     Indication: HYPERTONIC BLADDER
     Dosage: 12.5 MG (12.5 MG,1 IN 1 D),ORAL
     Route: 048
     Dates: start: 201112, end: 201112
  2. SAVELLA [Suspect]
     Indication: HYPERTONIC BLADDER
     Dosage: 100 MG (50 MG,2 IN 1 D),ORAL
     Route: 048
     Dates: start: 201112, end: 201201
  3. LIPITOR (ATORVASTATIN CALCIUM) (ATORVASTATIN CALCIUM) [Concomitant]
  4. DETROL (TOLTERODINE L-TARTRATE) (TOLTERODINE L-TARTRATE)? [Concomitant]
  5. SUCRALFATE (SUCRALFATE) (SUCRALFATE) [Concomitant]

REACTIONS (3)
  - Hot flush [None]
  - Blood pressure increased [None]
  - Off label use [None]
